FAERS Safety Report 25222326 (Version 1)
Quarter: 2025Q2

REPORT INFORMATION
  Report Type: Spontaneous
  Country: FR (occurrence: FR)
  Receive Date: 20250421
  Receipt Date: 20250421
  Transmission Date: 20250717
  Serious: Yes (Other)
  Sender: MERCK SHARP & DOHME LLC
  Company Number: None

PATIENT
  Age: 71 Year
  Sex: Female
  Weight: 59.8 kg

DRUGS (2)
  1. TEMODAL [Suspect]
     Active Substance: TEMOZOLOMIDE
     Indication: Pancreatic carcinoma
     Dosage: DAILY DOSE : 250 MILLIGRAM
     Route: 048
     Dates: start: 20231101
  2. CAPECITABINE [Suspect]
     Active Substance: CAPECITABINE
     Indication: Pancreatic carcinoma
     Dosage: DOSE DESCRIPTION : 500 MG IN THE MORNING, 600 MG IN THE EVENING?DAILY DOSE : 1100 MILLIGRAM
     Route: 048
     Dates: start: 20231101

REACTIONS (4)
  - Choking [Recovered/Resolved]
  - Laryngeal discomfort [Recovered/Resolved]
  - Eyelid oedema [Recovering/Resolving]
  - Dyspnoea [Recovered/Resolved]

NARRATIVE: CASE EVENT DATE: 20240910
